FAERS Safety Report 12911310 (Version 2)
Quarter: 2016Q4

REPORT INFORMATION
  Report Type: Spontaneous
  Country: NL (occurrence: NL)
  Receive Date: 20161104
  Receipt Date: 20161117
  Transmission Date: 20170207
  Serious: Yes (Other)
  Sender: FDA-Public Use
  Company Number: NL-PFIZER INC-2016511241

PATIENT
  Age: 68 Year
  Sex: Male
  Weight: 72 kg

DRUGS (1)
  1. LYRICA [Suspect]
     Active Substance: PREGABALIN
     Indication: NEURALGIC AMYOTROPHY
     Dosage: 75 MG (1 DF), 3X/DAY
     Route: 048
     Dates: start: 20160407, end: 20160504

REACTIONS (6)
  - Hypoaesthesia [Unknown]
  - Skin fissures [Recovered/Resolved]
  - Fingerprint loss [Recovered/Resolved]
  - Product use issue [Unknown]
  - Skin haemorrhage [Recovered/Resolved]
  - Skin wound [Recovered/Resolved]

NARRATIVE: CASE EVENT DATE: 20160407
